FAERS Safety Report 20096011 (Version 1)
Quarter: 2021Q4

REPORT INFORMATION
  Report Type: Spontaneous
  Country: US (occurrence: None)
  Receive Date: 20211120
  Receipt Date: 20211120
  Transmission Date: 20220303
  Serious: No
  Sender: FDA-Public Use
  Company Number: None

PATIENT
  Age: 45 Year
  Sex: Female
  Weight: 111.1 kg

DRUGS (15)
  1. CASIRIVIMAB\IMDEVIMAB [Suspect]
     Active Substance: CASIRIVIMAB\IMDEVIMAB
     Indication: COVID-19
     Dosage: OTHER FREQUENCY : ONCE;?
     Route: 042
     Dates: start: 20211120, end: 20211120
  2. ALPRAZOLAM [Concomitant]
     Active Substance: ALPRAZOLAM
     Dates: start: 20210904
  3. ATORVASTATIN CALCIUM [Concomitant]
     Active Substance: ATORVASTATIN CALCIUM
     Dates: start: 20211013
  4. duloxetine 90 mg DR capsule [Concomitant]
     Dates: start: 20210830
  5. famotidine 20 mg tablet [Concomitant]
     Dates: start: 20211013
  6. Breo Ellipta 200 mcg-25 mcg/inh [Concomitant]
     Dates: start: 20210911
  7. Tresiba 100 units/mL [Concomitant]
     Dates: start: 20211027
  8. lisinopril 40 mg tablet [Concomitant]
     Dates: start: 20210930
  9. MONTELUKAST SODIUM [Concomitant]
     Active Substance: MONTELUKAST SODIUM
     Dates: start: 20211117
  10. nystatin 100000 units/g cream [Concomitant]
     Dates: start: 20211117
  11. potassium chloride 10 mEq ER tablet [Concomitant]
     Dates: start: 20211117
  12. prazosin 1 mg capsule [Concomitant]
     Dates: start: 20210830
  13. buspirone HCl 10 mg tablet [Concomitant]
     Dates: start: 20210830
  14. glipizide 5 mg ER tablet [Concomitant]
     Dates: start: 20210930
  15. hydrochlorothiazide 25 mg tablet [Concomitant]
     Dates: start: 20211013

REACTIONS (5)
  - Chest pain [None]
  - Pain [None]
  - Back pain [None]
  - Pain in extremity [None]
  - Infusion related reaction [None]

NARRATIVE: CASE EVENT DATE: 20211120
